FAERS Safety Report 5223553-2 (Version None)
Quarter: 2007Q1

REPORT INFORMATION
  Report Type: 
  Country: None (occurrence: None)
  Receive Date: 20070125
  Receipt Date: 20070117
  Transmission Date: 20070707
  Serious: Yes (Death)
  Sender: FDA-Public Use
  Company Number: 06-047A

PATIENT
  Age: 32 Year
  Sex: Male

DRUGS (13)
  1. LORCET PLUS TABLETS 7.5/650 (HYDROCODONE BITARTRATE AND ACETAMINOPHEN) [Suspect]
     Indication: PAIN
  2. TALWIN NX [Suspect]
     Indication: PAIN
  3. NORCO [Suspect]
     Indication: PAIN
  4. VICODIN [Suspect]
     Indication: PAIN
  5. LORTAB [Suspect]
     Indication: PAIN
  6. AMBIEN [Suspect]
     Indication: PAIN
  7. TEMAZEPAM [Suspect]
     Indication: PAIN
  8. DALMANE [Suspect]
     Indication: PAIN
  9. RESTORIL [Suspect]
     Indication: PAIN
  10. LIDODERM [Suspect]
     Indication: PAIN
  11. LIDOPAIN (LIDOCAINE) [Suspect]
     Indication: PAIN
  12. ZONEGRAN [Concomitant]
  13. PROPONAPAT (NOS) [Concomitant]

REACTIONS (29)
  - ABNORMAL DREAMS [None]
  - ADRENAL HAEMORRHAGE [None]
  - AMNESIA [None]
  - ANXIETY [None]
  - BLOOD PRESSURE DECREASED [None]
  - BRADYCARDIA [None]
  - BRAIN OEDEMA [None]
  - COMPLETED SUICIDE [None]
  - CONFUSIONAL STATE [None]
  - DEPRESSION [None]
  - EMOTIONAL DISTRESS [None]
  - FACE INJURY [None]
  - FALL [None]
  - GUN SHOT WOUND [None]
  - HALLUCINATION [None]
  - HEAD INJURY [None]
  - HEART RATE INCREASED [None]
  - HYPOTONIA [None]
  - INTENTIONAL SELF-INJURY [None]
  - LOSS OF CONSCIOUSNESS [None]
  - MOOD ALTERED [None]
  - MYDRIASIS [None]
  - NERVOUSNESS [None]
  - OXYGEN SATURATION DECREASED [None]
  - PARTNER STRESS [None]
  - PNEUMOCONIOSIS [None]
  - PULMONARY OEDEMA [None]
  - PUPIL FIXED [None]
  - VISCERAL CONGESTION [None]
